FAERS Safety Report 4591525-7 (Version None)
Quarter: 2005Q1

REPORT INFORMATION
  Report Type: 
  Country: None (occurrence: None)
  Receive Date: 20050223
  Receipt Date: 20050223
  Transmission Date: 20050727
  Serious: Yes (Life-Threatening, Hospitalization)
  Sender: FDA-Public Use
  Company Number: None

PATIENT
  Age: 59 Year
  Sex: Male
  Weight: 86 kg

DRUGS (3)
  1. NAFCILLIN [Suspect]
     Indication: ENDOCARDITIS
     Dosage: 2 G Q 4H IV
     Route: 042
  2. VANCOMYCIN [Suspect]
     Dosage: 1 G IV Q 12H
     Route: 042
  3. FUROSEMIDE [Suspect]
     Dosage: 40 MG Q DAY

REACTIONS (7)
  - ACUTE PRERENAL FAILURE [None]
  - ENDOCARDITIS [None]
  - RASH ERYTHEMATOUS [None]
  - RASH MACULO-PAPULAR [None]
  - STAPHYLOCOCCAL BACTERAEMIA [None]
  - SWELLING [None]
  - VASCULITIC RASH [None]
